FAERS Safety Report 21116806 (Version 1)
Quarter: 2022Q3

REPORT INFORMATION
  Report Type: Report from Study
  Country: US (occurrence: US)
  Receive Date: 20220722
  Receipt Date: 20220722
  Transmission Date: 20221027
  Serious: Yes (Other)
  Sender: FDA-Public Use
  Company Number: US-BRISTOL-MYERS SQUIBB COMPANY-2022-075601

PATIENT
  Age: 65 Year
  Sex: Female
  Weight: 66.4 kg

DRUGS (7)
  1. NIVOLUMAB [Suspect]
     Active Substance: NIVOLUMAB
     Indication: Renal cell carcinoma
     Dosage: 3 MG/KG, ON DAY 1 (CYCLE: 21 DAYS, MAX 4 CYCLES)
     Route: 042
     Dates: start: 20220211
  2. NIVOLUMAB [Suspect]
     Active Substance: NIVOLUMAB
     Route: 065
     Dates: start: 20220609, end: 20220609
  3. IPILIMUMAB [Suspect]
     Active Substance: IPILIMUMAB
     Indication: Renal cell carcinoma
     Dosage: 1 MG/KG, ON DAY 1 (CYCLE: 21 DAYS, MAX 4 CYCLES)
     Route: 042
     Dates: start: 20220211, end: 202205
  4. CABOZANTINIB [Suspect]
     Active Substance: CABOZANTINIB
     Indication: Renal cell carcinoma
     Route: 065
     Dates: start: 20220211
  5. CABOZANTINIB [Suspect]
     Active Substance: CABOZANTINIB
     Route: 065
     Dates: start: 20220609, end: 20220707
  6. CARDURA [Concomitant]
     Active Substance: DOXAZOSIN MESYLATE
     Dosage: UNK
  7. CARDURA [Concomitant]
     Active Substance: DOXAZOSIN MESYLATE
     Indication: Blood pressure measurement
     Route: 065

REACTIONS (1)
  - Hypertension [Recovered/Resolved]

NARRATIVE: CASE EVENT DATE: 20220613
